FAERS Safety Report 7638780-4 (Version None)
Quarter: 2011Q3

REPORT INFORMATION
  Report Type: 
  Country: None (occurrence: None)
  Receive Date: 20110727
  Receipt Date: 20110719
  Transmission Date: 20111222
  Serious: Yes (Hospitalization)
  Sender: FDA-Public Use
  Company Number: GB-ROCHE-790708

PATIENT
  Sex: Female
  Weight: 12.7 kg

DRUGS (9)
  1. DACTINOMYCIN [Suspect]
     Indication: SARCOMA METASTATIC
     Dosage: FREQUENCY: DAY 1  DOSAGE FORM: 1.5 MG/M2   LAST DOSE PRIOR TO SAE WAS TAKEN ON 12 JULY 2011
     Route: 042
     Dates: start: 20110712
  2. ACETAMINOPHEN [Concomitant]
     Route: 042
  3. ONDANSETRON [Concomitant]
     Route: 042
  4. IFOSFAMIDE [Suspect]
     Indication: SARCOMA METASTATIC
     Dosage: FREQUENCY: DAYS 1 AND 2.   DOSAGE FORM:3G/M2   LAST DOSE PRIOR TO SAE WAS TAKEN ON 13 JULY 2011
     Route: 042
     Dates: start: 20110712
  5. DOXORUBICIN HCL [Suspect]
     Indication: SARCOMA METASTATIC
     Dosage: FREQUENCY: DAYS 1 AND 2    DOSAGE FORM: 30 MG/M2   LAST DOSE PRIOR TO SAE WAS TAKEN ON 13 JULY 2011
     Route: 042
     Dates: start: 20110712
  6. VINCRISTINE [Suspect]
     Indication: SARCOMA METASTATIC
     Dosage: FREQUENCY: DAY 1  DOSAGE FORM: 1.5 MG/M2
     Route: 042
     Dates: start: 20110712
  7. MESNA [Suspect]
     Indication: SARCOMA METASTATIC
     Dosage: FREQUENCY: DAYS 1 AND 2  DOSAGE FORM: 3600 MG/M2  LAST DOSE PRIOR TO SAE WAS TAKEN ON 13 JULY 2011
     Route: 042
     Dates: start: 20110712
  8. FLUCONAZOLE [Concomitant]
     Route: 042
  9. BEVACIZUMAB [Suspect]
     Indication: SARCOMA METASTATIC
     Dosage: FREQUENCY: DAY 1
     Route: 042
     Dates: start: 20110712

REACTIONS (2)
  - MUCOSAL INFLAMMATION [None]
  - FEBRILE NEUTROPENIA [None]
